FAERS Safety Report 19617178 (Version 1)
Quarter: 2021Q3

REPORT INFORMATION
  Report Type: Spontaneous
  Country: US (occurrence: US)
  Receive Date: 20210727
  Receipt Date: 20210727
  Transmission Date: 20211014
  Serious: No
  Sender: FDA-Public Use
  Company Number: US-ABBVIE-20K-163-3647522-00

PATIENT
  Sex: Male
  Weight: 60.78 kg

DRUGS (1)
  1. LEVOTHYROXINE. [Suspect]
     Active Substance: LEVOTHYROXINE
     Indication: PRODUCT USED FOR UNKNOWN INDICATION
     Route: 048

REACTIONS (8)
  - Hyperhidrosis [Not Recovered/Not Resolved]
  - Tremor [Unknown]
  - Pruritus [Unknown]
  - Drug hypersensitivity [Unknown]
  - Muscular weakness [Unknown]
  - Dyspnoea [Unknown]
  - Dysphagia [Unknown]
  - Muscle spasms [Unknown]
